FAERS Safety Report 11758691 (Version 6)
Quarter: 2016Q1

REPORT INFORMATION
  Report Type: Report from Study
  Country: GB (occurrence: GB)
  Receive Date: 20151120
  Receipt Date: 20160129
  Transmission Date: 20160525
  Serious: Yes (Death, Hospitalization)
  Sender: FDA-Public Use
  Company Number: GB-ABBVIE-15P-167-1503129-00

PATIENT
  Age: 67 Year
  Sex: Female
  Weight: 69.4 kg

DRUGS (1)
  1. HUMIRA [Suspect]
     Active Substance: ADALIMUMAB
     Indication: PSORIASIS
     Route: 058
     Dates: start: 20120426, end: 20140710

REACTIONS (1)
  - Paget^s disease of nipple [Fatal]

NARRATIVE: CASE EVENT DATE: 20140510
